FAERS Safety Report 21758386 (Version 1)
Quarter: 2022Q4

REPORT INFORMATION
  Report Type: Report from Study
  Country: US (occurrence: US)
  Receive Date: 20221221
  Receipt Date: 20221221
  Transmission Date: 20230113
  Serious: Yes (Hospitalization, Other)
  Sender: FDA-Public Use
  Company Number: US-BEH-2022153362

PATIENT
  Age: 19 Year
  Sex: Male
  Weight: 63.492 kg

DRUGS (2)
  1. HIZENTRA [Suspect]
     Active Substance: HUMAN IMMUNOGLOBULIN G
     Indication: Primary immunodeficiency syndrome
     Dosage: 10 GRAM, QW
     Route: 058
     Dates: start: 20220913, end: 2022
  2. ALBUMINAR [Concomitant]
     Active Substance: ALBUMIN HUMAN
     Route: 065

REACTIONS (1)
  - Cardiac disorder [Not Recovered/Not Resolved]
